FAERS Safety Report 8904615 (Version 1)
Quarter: 2012Q4

REPORT INFORMATION
  Report Type: 
  Country: CA (occurrence: CA)
  Receive Date: 20121113
  Receipt Date: 20121113
  Transmission Date: 20130627
  Serious: Yes (Hospitalization)
  Sender: FDA-Public Use
  Company Number: PHBS2001CA12784

PATIENT
  Age: 75 Year
  Sex: Male

DRUGS (4)
  1. EXELON [Suspect]
     Route: 048
     Dates: start: 20010307, end: 20010805
  2. EXELON [Suspect]
     Dosage: 3 mg, BID
  3. EXELON [Suspect]
     Dosage: 4.5 mg, BID
     Dates: start: 20010307
  4. EXELON [Suspect]
     Dosage: 6 mg, BID
     Route: 048
     Dates: start: 20010806, end: 20011124

REACTIONS (2)
  - Cerebrovascular accident [Not Recovered/Not Resolved]
  - Diarrhoea [Recovered/Resolved]
